FAERS Safety Report 6310371-7 (Version None)
Quarter: 2009Q3

REPORT INFORMATION
  Report Type: 
  Country: None (occurrence: None)
  Receive Date: 20090814
  Receipt Date: 20090804
  Transmission Date: 20100115
  Serious: Yes (Hospitalization, Other)
  Sender: FDA-Public Use
  Company Number: SE-ABBOTT-09P-150-0579400-00

PATIENT
  Age: 38 Year
  Sex: Female

DRUGS (7)
  1. REDUCTIL [Suspect]
     Indication: DRUG USE FOR UNKNOWN INDICATION
     Route: 048
  2. FLUOXETINE [Suspect]
     Indication: DRUG USE FOR UNKNOWN INDICATION
     Route: 048
  3. LEVOTHYROXINE SODIUM [Suspect]
     Indication: DRUG USE FOR UNKNOWN INDICATION
     Route: 048
  4. SALURES [Concomitant]
     Indication: DRUG USE FOR UNKNOWN INDICATION
  5. IMPUGAN [Concomitant]
     Indication: DRUG USE FOR UNKNOWN INDICATION
  6. NORMORIX MITE [Concomitant]
     Indication: DRUG USE FOR UNKNOWN INDICATION
     Dosage: 2.5/25 MG
  7. XENICAL [Concomitant]
     Indication: DRUG USE FOR UNKNOWN INDICATION

REACTIONS (6)
  - ATRIAL FIBRILLATION [None]
  - BRAIN INJURY [None]
  - CARDIAC ARREST [None]
  - ELECTROCARDIOGRAM QT PROLONGED [None]
  - HYPOKALAEMIA [None]
  - VENTRICULAR TACHYCARDIA [None]
